FAERS Safety Report 5047438-X (Version None)
Quarter: 2006Q3

REPORT INFORMATION
  Report Type: 
  Country: None (occurrence: None)
  Receive Date: 20060703
  Receipt Date: 20060623
  Transmission Date: 20061208
  Serious: Yes (Hospitalization)
  Sender: FDA-Public Use
  Company Number: 2006074323

PATIENT
  Age: 15 Year
  Sex: Female

DRUGS (5)
  1. CELEBREX [Suspect]
     Indication: DRUG USE FOR UNKNOWN INDICATION
     Dosage: 8 DOSE FORMS, ORAL
     Route: 048
     Dates: start: 20060515, end: 20060515
  2. PONSTYL (MEFENAMIC ACID) [Suspect]
     Dosage: 20 DOSE FORMS, ORAL
     Route: 048
     Dates: start: 20060515, end: 20060515
  3. ACETAMINOPHEN [Suspect]
     Indication: DRUG USE FOR UNKNOWN INDICATION
     Dosage: 8 DOSE FORMS, ORAL
     Route: 048
     Dates: start: 20060515, end: 20060515
  4. ACETAMINOPHEN AND TRAMADOL HCL [Suspect]
     Indication: DRUG USE FOR UNKNOWN INDICATION
     Dosage: 10 DOSE FORMS, ORAL
     Route: 048
     Dates: start: 20060515, end: 20060515
  5. PHARMATON (CAFFEINE, DISODIUM METHANEARSONATE, NICOTINAMIDE, PYRIDOXIN [Concomitant]

REACTIONS (6)
  - BLOOD CREATININE DECREASED [None]
  - DRUG LEVEL INCREASED [None]
  - HEADACHE [None]
  - NAUSEA [None]
  - OVERDOSE [None]
  - VERTIGO [None]
